FAERS Safety Report 11685520 (Version 6)
Quarter: 2016Q4

REPORT INFORMATION
  Report Type: Report from Study
  Country: GB (occurrence: GB)
  Receive Date: 20151030
  Receipt Date: 20161113
  Transmission Date: 20170206
  Serious: Yes (Other)
  Sender: FDA-Public Use
  Company Number: PHHY2015GB004202

PATIENT
  Age: 44 Year
  Sex: Female

DRUGS (9)
  1. SERTRALINE [Concomitant]
     Active Substance: SERTRALINE HYDROCHLORIDE
     Indication: ADJUSTMENT DISORDER WITH DEPRESSED MOOD
     Dosage: 100 MG, QD
     Route: 065
     Dates: start: 201401
  2. GILENYA [Suspect]
     Active Substance: FINGOLIMOD HYDROCHLORIDE
     Indication: MULTIPLE SCLEROSIS
     Dosage: 500 UG, QD
     Route: 048
     Dates: start: 20140624
  3. OMEPRAZOLE. [Concomitant]
     Active Substance: OMEPRAZOLE
     Indication: CHOLELITHIASIS
  4. RAMIPRIL. [Concomitant]
     Active Substance: RAMIPRIL
     Indication: BLOOD PRESSURE INCREASED
     Dosage: 2.5 MG, QD
     Route: 065
  5. FENTANYL. [Concomitant]
     Active Substance: FENTANYL
     Indication: PAIN
     Dosage: UNK
     Route: 065
     Dates: start: 20150128
  6. VITAMIN D3 [Concomitant]
     Active Substance: CHOLECALCIFEROL
     Indication: PRODUCT USED FOR UNKNOWN INDICATION
     Route: 065
  7. ORAMORPH [Concomitant]
     Active Substance: MORPHINE SULFATE
     Indication: PAIN
     Dosage: UNK
     Route: 065
     Dates: start: 20150128
  8. OMEPRAZOLE. [Concomitant]
     Active Substance: OMEPRAZOLE
     Indication: ABDOMINOPLASTY
     Dosage: 40 MG, QD
     Route: 065
  9. DURAGESIC [Concomitant]
     Active Substance: FENTANYL
     Indication: PAIN
     Dosage: UNK
     Route: 065
     Dates: start: 20150128

REACTIONS (12)
  - Cough [Recovering/Resolving]
  - Blood bilirubin increased [Unknown]
  - Mouth ulceration [Unknown]
  - Pleurisy [Recovering/Resolving]
  - Gamma-glutamyltransferase increased [Unknown]
  - Lower respiratory tract infection [Unknown]
  - Respiratory tract infection [Recovered/Resolved]
  - Blood alkaline phosphatase increased [Unknown]
  - Diarrhoea [Unknown]
  - Oral herpes [Recovered/Resolved]
  - Pneumonia [Recovering/Resolving]
  - Cellulitis [Unknown]

NARRATIVE: CASE EVENT DATE: 201407
